FAERS Safety Report 14967042 (Version 1)
Quarter: 2018Q2

REPORT INFORMATION
  Report Type: Spontaneous
  Country: JP (occurrence: JP)
  Receive Date: 20180604
  Receipt Date: 20180604
  Transmission Date: 20180711
  Serious: No
  Sender: FDA-Public Use
  Company Number: JP-CHEPLA-C20171020

PATIENT
  Age: 43 Year
  Sex: Female

DRUGS (1)
  1. VESANOID [Suspect]
     Active Substance: TRETINOIN
     Indication: ACUTE PROMYELOCYTIC LEUKAEMIA
     Route: 048
     Dates: start: 20171214, end: 20171222

REACTIONS (3)
  - Liver disorder [Not Recovered/Not Resolved]
  - Eczema [Not Recovered/Not Resolved]
  - Basophil count increased [Not Recovered/Not Resolved]

NARRATIVE: CASE EVENT DATE: 20171220
